FAERS Safety Report 20127779 (Version 2)
Quarter: 2021Q4

REPORT INFORMATION
  Report Type: Spontaneous
  Country: TR (occurrence: TR)
  Receive Date: 20211129
  Receipt Date: 20211229
  Transmission Date: 20220303
  Serious: Yes (Life-Threatening, Other)
  Sender: FDA-Public Use
  Company Number: TR-SA-SAC20211129000807

PATIENT
  Age: 48 Year
  Sex: Male
  Weight: 112 kg

DRUGS (2)
  1. ELOXATIN [Suspect]
     Active Substance: OXALIPLATIN
     Indication: Hepatic cancer
     Dosage: 198 MG, TOTAL
     Route: 042
     Dates: start: 20211112, end: 20211112
  2. LEUCOVORIN [Concomitant]
     Active Substance: LEUCOVORIN
     Indication: Hepatic cancer
     Dosage: 932 MG, TOTAL
     Route: 042
     Dates: start: 20211112, end: 20211112

REACTIONS (4)
  - Laryngeal oedema [Recovered/Resolved]
  - Dyspnoea [Recovered/Resolved]
  - Hypertension [Recovered/Resolved]
  - Product use in unapproved indication [Unknown]

NARRATIVE: CASE EVENT DATE: 20211112
